FAERS Safety Report 18276208 (Version 1)
Quarter: 2020Q3

REPORT INFORMATION
  Report Type: Spontaneous
  Country: JP (occurrence: JP)
  Receive Date: 20200917
  Receipt Date: 20200917
  Transmission Date: 20201103
  Serious: Yes (Other)
  Sender: FDA-Public Use
  Company Number: JP-ABBVIE-20K-087-3568968-00

PATIENT
  Age: 68 Year
  Sex: Male

DRUGS (1)
  1. IMBRUVICA [Suspect]
     Active Substance: IBRUTINIB
     Indication: MANTLE CELL LYMPHOMA
     Route: 048

REACTIONS (6)
  - Herpes zoster [Unknown]
  - Pericarditis [Unknown]
  - Adrenal disorder [Unknown]
  - Campylobacter sepsis [Unknown]
  - Myelodysplastic syndrome [Unknown]
  - Pneumococcal sepsis [Unknown]
